FAERS Safety Report 8959528 (Version 3)
Quarter: 2013Q1

REPORT INFORMATION
  Report Type: Spontaneous
  Country: CO (occurrence: CO)
  Receive Date: 20121212
  Receipt Date: 20130130
  Transmission Date: 20140127
  Serious: Yes (Hospitalization)
  Sender: FDA-Public Use
  Company Number: CO-MERCK-1212COL003831

PATIENT
  Age: 56 Year
  Sex: Female

DRUGS (3)
  1. PEG-INTRON [Suspect]
     Dosage: UNK
     Dates: start: 20120927
  2. RIBAVIRIN [Suspect]
     Dosage: UNK
     Route: 048
     Dates: start: 20120927
  3. VICTRELIS [Suspect]
     Dosage: UNK
     Route: 048
     Dates: start: 20120927

REACTIONS (7)
  - Bradycardia [Recovered/Resolved]
  - Hypotension [Recovered/Resolved]
  - Malaise [Recovered/Resolved]
  - Asthenia [Recovered/Resolved]
  - Neutropenia [Unknown]
  - Ear pain [Unknown]
  - Laryngitis [Unknown]
